FAERS Safety Report 22399347 (Version 1)
Quarter: 2023Q2

REPORT INFORMATION
  Report Type: Spontaneous
  Country: GB (occurrence: None)
  Receive Date: 20230602
  Receipt Date: 20230602
  Transmission Date: 20230722
  Serious: Yes (Hospitalization)
  Sender: FDA-Public Use
  Company Number: 2023A127086

PATIENT
  Age: 71 Year
  Sex: Female

DRUGS (10)
  1. OMEPRAZOLE [Suspect]
     Active Substance: OMEPRAZOLE
     Indication: Reflux gastritis
     Dosage: 1 OD PRN REFLUX - DOESN^T TAKE OFTEN.
  2. LISINOPRIL [Suspect]
     Active Substance: LISINOPRIL
  3. LISINOPRIL [Suspect]
     Active Substance: LISINOPRIL
  4. FUROSEMIDE [Suspect]
     Active Substance: FUROSEMIDE
     Dosage: 2 OM - STOPPED O/A
  5. ALLOPURINOL [Concomitant]
     Active Substance: ALLOPURINOL
     Dosage: 1 ON
  6. CETIRIZINE [Concomitant]
     Active Substance: CETIRIZINE HYDROCHLORIDE
     Dosage: 1 OM
  7. LEVOTHYROXINE SODIUM [Concomitant]
     Active Substance: LEVOTHYROXINE SODIUM
     Dosage: 1 OM
  8. SIMVASTATIN [Concomitant]
     Active Substance: SIMVASTATIN
     Dosage: 1 ON
  9. SYMBICORT [Concomitant]
     Active Substance: BUDESONIDE\FORMOTEROL FUMARATE DIHYDRATE
     Dosage: 200/6 TURBOHALER 2 PUFFS BD
  10. ALBUTEROL [Concomitant]
     Active Substance: ALBUTEROL
     Dosage: 100MICROGRAMS/DOSE INHALER CFC FREE 1-2 PUFFS QDS PRN

REACTIONS (1)
  - Inappropriate antidiuretic hormone secretion [Recovered/Resolved]
